FAERS Safety Report 6287470-1 (Version None)
Quarter: 2009Q3

REPORT INFORMATION
  Report Type: 
  Country: None (occurrence: None)
  Receive Date: 20090728
  Receipt Date: 20090720
  Transmission Date: 20100115
  Serious: Yes (Hospitalization, Other)
  Sender: FDA-Public Use
  Company Number: US-ABBOTT-09P-163-0584615-00

PATIENT
  Sex: Female
  Weight: 56.75 kg

DRUGS (7)
  1. SYNTHROID [Suspect]
     Indication: HYPOTHYROIDISM
     Dates: start: 20060101
  2. UNKNOWN ANESTHETIC [Suspect]
     Indication: HIP ARTHROPLASTY
     Dates: start: 20090703, end: 20090703
  3. CRESTOR [Concomitant]
     Indication: BLOOD CHOLESTEROL INCREASED
     Route: 048
  4. VASOTEC [Concomitant]
     Indication: HYPERTENSION
     Route: 048
  5. VOLTAREN [Concomitant]
     Indication: OSTEOARTHRITIS
  6. VITAMINS NOS [Concomitant]
     Indication: DRUG USE FOR UNKNOWN INDICATION
  7. CO Q10 [Concomitant]
     Indication: DRUG USE FOR UNKNOWN INDICATION
     Route: 048

REACTIONS (2)
  - ALOPECIA [None]
  - GROIN PAIN [None]
